FAERS Safety Report 23308105 (Version 1)
Quarter: 2023Q4

REPORT INFORMATION
  Report Type: Spontaneous
  Country: CA (occurrence: CA)
  Receive Date: 20231218
  Receipt Date: 20231218
  Transmission Date: 20240110
  Serious: Yes (Other)
  Sender: FDA-Public Use
  Company Number: CA-PFIZER INC-PV202300201840

PATIENT
  Age: 69 Year
  Sex: Female

DRUGS (1)
  1. IBRANCE [Suspect]
     Active Substance: PALBOCICLIB
     Dosage: 125 MG X 21DAYS
     Dates: start: 20180528

REACTIONS (5)
  - Pulmonary fibrosis [Unknown]
  - Stress [Unknown]
  - Anxiety [Unknown]
  - Osteoporosis [Unknown]
  - Malaise [Unknown]
